FAERS Safety Report 6140242-0 (Version None)
Quarter: 2009Q2

REPORT INFORMATION
  Report Type: 
  Country: None (occurrence: None)
  Receive Date: 20090401
  Receipt Date: 20090331
  Transmission Date: 20091009
  Serious: Yes (Hospitalization)
  Sender: FDA-Public Use
  Company Number: US-ROXANE LABORATORIES, INC.-2009-RO-00131RO

PATIENT
  Sex: Male

DRUGS (9)
  1. PREDNISONE [Suspect]
     Indication: ECZEMA
     Dosage: 30MG
     Route: 048
     Dates: start: 20080101
  2. PREDNISONE [Suspect]
     Indication: FOOD ALLERGY
     Dosage: 10MG
     Route: 048
  3. PREDNISONE [Suspect]
  4. SYNTHROID [Concomitant]
     Dosage: 100MCG
  5. OMEGA 3 OIL [Concomitant]
  6. CALCIUM [Concomitant]
  7. HYDROCORTISONE [Concomitant]
     Dosage: 100MG
  8. CELEXA [Concomitant]
     Dosage: 20MG
  9. TRAZODONE HCL [Concomitant]
     Dosage: 100MG

REACTIONS (4)
  - ADRENAL DISORDER [None]
  - BLISTER [None]
  - PRURITUS [None]
  - RASH [None]
